FAERS Safety Report 16674244 (Version 2)
Quarter: 2020Q1

REPORT INFORMATION
  Report Type: Report from Study
  Country: US (occurrence: US)
  Receive Date: 20190806
  Receipt Date: 20200306
  Transmission Date: 20200409
  Serious: Yes (Hospitalization)
  Sender: FDA-Public Use
  Company Number: US-BRISTOL-MYERS SQUIBB COMPANY-BMS-2019-074241

PATIENT
  Age: 84 Year
  Sex: Male
  Weight: 98.41 kg

DRUGS (1)
  1. ABATACEPT [Suspect]
     Active Substance: ABATACEPT
     Indication: RHEUMATOID ARTHRITIS
     Dosage: 125 MILLIGRAM, QWK
     Route: 058
     Dates: start: 201902

REACTIONS (4)
  - Eye disorder [Unknown]
  - Device malfunction [Unknown]
  - Product leakage [Unknown]
  - Hernia [Unknown]

NARRATIVE: CASE EVENT DATE: 20190724
